FAERS Safety Report 4882381-8 (Version None)
Quarter: 2005Q4

REPORT INFORMATION
  Report Type: 
  Country: None (occurrence: None)
  Receive Date: 20051201
  Receipt Date: 20050722
  Transmission Date: 20060501
  Serious: No
  Sender: FDA-Public Use
  Company Number: 2005PV000611

PATIENT
  Age: 65 Year
  Sex: Female
  Weight: 131.0895 kg

DRUGS (11)
  1. BYETTA [Suspect]
     Indication: DIABETES MELLITUS NON-INSULIN-DEPENDENT
     Dosage: 5 MCG;BID;SC
     Route: 058
     Dates: start: 20050714
  2. GLIPIZIDE [Concomitant]
  3. ALLEGRA [Concomitant]
  4. ALLOPURINOL [Concomitant]
  5. LEVOTHYROXINE SODIUM [Concomitant]
  6. NASONEX [Concomitant]
  7. ALBUTEROL SULFATE AUTOHALER [Concomitant]
  8. DITROPAN XL [Concomitant]
  9. LESCOL XL [Concomitant]
  10. DICLOFENAC [Concomitant]
  11. TYLENOL (CAPLET) [Concomitant]

REACTIONS (2)
  - BLOOD GLUCOSE INCREASED [None]
  - DECREASED APPETITE [None]
